FAERS Safety Report 9621058 (Version 1)
Quarter: 2013Q4

REPORT INFORMATION
  Report Type: Spontaneous
  Country: US (occurrence: US)
  Receive Date: 20131015
  Receipt Date: 20131015
  Transmission Date: 20140711
  Serious: Yes (Hospitalization, Other)
  Sender: FDA-Public Use
  Company Number: US-ASTRAZENECA-2013SE74510

PATIENT
  Age: 49 Year
  Sex: Male
  Weight: 80.7 kg

DRUGS (7)
  1. NEXIUM [Suspect]
     Indication: GASTROOESOPHAGEAL REFLUX DISEASE
     Route: 048
     Dates: start: 2001
  2. PRILOSEC [Suspect]
     Indication: GASTROOESOPHAGEAL REFLUX DISEASE
     Route: 048
     Dates: end: 2001
  3. DIAZEPAM [Concomitant]
     Indication: SLEEP DISORDER
     Route: 048
     Dates: start: 2003
  4. DIAZEPAM [Concomitant]
     Indication: ANXIETY
     Route: 048
     Dates: start: 2003
  5. DIAZEPAM [Concomitant]
     Indication: SLEEP DISORDER
     Dosage: 5-10 MG AT NIGHT
     Route: 048
     Dates: start: 200303
  6. DIAZEPAM [Concomitant]
     Indication: ANXIETY
     Dosage: 5-10 MG AT NIGHT
     Route: 048
     Dates: start: 200303
  7. MELONTONIN [Concomitant]
     Indication: SLEEP DISORDER
     Route: 048
     Dates: start: 2012

REACTIONS (13)
  - Craniocerebral injury [Recovering/Resolving]
  - Road traffic accident [Recovering/Resolving]
  - Pancreatitis [Recovered/Resolved]
  - Amnesia [Not Recovered/Not Resolved]
  - Intervertebral disc injury [Unknown]
  - CSF pressure increased [Unknown]
  - Thyroid mass [Not Recovered/Not Resolved]
  - Adrenal mass [Not Recovered/Not Resolved]
  - Calculus urinary [Not Recovered/Not Resolved]
  - Anxiety [Not Recovered/Not Resolved]
  - Anosmia [Recovering/Resolving]
  - Diarrhoea [Recovered/Resolved]
  - Insomnia [Unknown]
